FAERS Safety Report 7928413-1 (Version None)
Quarter: 2011Q4

REPORT INFORMATION
  Report Type: 
  Country: None (occurrence: None)
  Receive Date: 20111118
  Receipt Date: 20111117
  Transmission Date: 20120403
  Serious: No
  Sender: FDA-Public Use
  Company Number: US-BAYER-2011-111265

PATIENT
  Age: 21 Year
  Sex: Female

DRUGS (1)
  1. GADAVIST [Suspect]
     Indication: NUCLEAR MAGNETIC RESONANCE IMAGING
     Dosage: 8 ML, ONCE
     Dates: start: 20111110, end: 20111110

REACTIONS (4)
  - NAUSEA [None]
  - EYE SWELLING [None]
  - URTICARIA [None]
  - EYE PRURITUS [None]
